FAERS Safety Report 19303777 (Version 2)
Quarter: 2021Q2

REPORT INFORMATION
  Report Type: Spontaneous
  Country: AU (occurrence: AU)
  Receive Date: 20210525
  Receipt Date: 20210618
  Transmission Date: 20210717
  Serious: Yes (Other)
  Sender: FDA-Public Use
  Company Number: AU-TEVA-2021-AU-1915501

PATIENT
  Sex: Female

DRUGS (2)
  1. IMATINIB. [Suspect]
     Active Substance: IMATINIB MESYLATE
     Indication: CHRONIC MYELOID LEUKAEMIA
     Dates: start: 20100910, end: 20111004
  2. DASATINIB. [Suspect]
     Active Substance: DASATINIB
     Indication: CHRONIC MYELOID LEUKAEMIA
     Dates: start: 20111005, end: 20170505

REACTIONS (6)
  - Diabetes mellitus [Unknown]
  - Drug intolerance [Unknown]
  - Treatment failure [Unknown]
  - Myocardial infarction [Unknown]
  - Pleural effusion [Unknown]
  - Drug resistance [Unknown]
